FAERS Safety Report 10722001 (Version 1)
Quarter: 2015Q1

REPORT INFORMATION
  Report Type: Spontaneous
  Country: US (occurrence: US)
  Receive Date: 20150119
  Receipt Date: 20150119
  Transmission Date: 20150721
  Serious: No
  Sender: FDA-Public Use
  Company Number: US-GLAXOSMITHKLINE-US2014GSK047162

PATIENT
  Age: 62 Year
  Sex: Female

DRUGS (8)
  1. PROMACTA [Suspect]
     Active Substance: ELTROMBOPAG OLAMINE
     Dosage: 75 MG, QD
     Dates: start: 201409
  2. TOPROL XL [Concomitant]
     Active Substance: METOPROLOL SUCCINATE
  3. XANAX [Concomitant]
     Active Substance: ALPRAZOLAM
  4. ZANTAC [Concomitant]
     Active Substance: RANITIDINE HYDROCHLORIDE
  5. CARDIZEM CD [Concomitant]
     Active Substance: DILTIAZEM HYDROCHLORIDE
  6. PROMACTA [Suspect]
     Active Substance: ELTROMBOPAG OLAMINE
     Indication: IMMUNE THROMBOCYTOPENIC PURPURA
     Dosage: 50 UG, QD
     Route: 048
     Dates: start: 201409, end: 201409
  7. PREDNISONE. [Concomitant]
     Active Substance: PREDNISONE
  8. WARFARIN [Concomitant]
     Active Substance: WARFARIN

REACTIONS (4)
  - Listless [Recovering/Resolving]
  - Alopecia [Not Recovered/Not Resolved]
  - Insomnia [Recovering/Resolving]
  - Drug ineffective [Not Recovered/Not Resolved]

NARRATIVE: CASE EVENT DATE: 201409
